FAERS Safety Report 7183771-3 (Version None)
Quarter: 2010Q4

REPORT INFORMATION
  Report Type: 
  Country: None (occurrence: None)
  Receive Date: 20101222
  Receipt Date: 20101217
  Transmission Date: 20110411
  Serious: Yes (Other)
  Sender: FDA-Public Use
  Company Number: US-B.I. PHARMACEUTICALS,INC./RIDGEFIELD-2010-BP-14660BP

PATIENT
  Age: 61 Year
  Sex: Female

DRUGS (3)
  1. AGGRENOX [Suspect]
     Indication: TRANSIENT ISCHAEMIC ATTACK
     Route: 048
     Dates: start: 20090101
  2. PREMARIN [Concomitant]
     Indication: HORMONE REPLACEMENT THERAPY
  3. NORCO [Concomitant]
     Indication: PAIN

REACTIONS (1)
  - CEREBROVASCULAR ACCIDENT [None]
